FAERS Safety Report 7506585-0 (Version None)
Quarter: 2011Q2

REPORT INFORMATION
  Report Type: 
  Country: None (occurrence: None)
  Receive Date: 20110411
  Receipt Date: 20110210
  Transmission Date: 20111010
  Serious: Yes (Hospitalization)
  Sender: FDA-Public Use
  Company Number: 026770

PATIENT
  Sex: Female
  Weight: 87.0906 kg

DRUGS (2)
  1. KEPPRA [Suspect]
     Indication: EPILEPSY
     Dosage: 2000 MG,  500 MG; DAILY
  2. DILANTIN [Concomitant]

REACTIONS (1)
  - INFLUENZA [None]
